FAERS Safety Report 7168097-6 (Version None)
Quarter: 2010Q4

REPORT INFORMATION
  Report Type: 
  Country: None (occurrence: None)
  Receive Date: 20101216
  Receipt Date: 20101207
  Transmission Date: 20110411
  Serious: Yes (Other)
  Sender: FDA-Public Use
  Company Number: US-PFIZER INC-2010170220

PATIENT
  Age: 12 Year
  Sex: Female
  Weight: 63.5 kg

DRUGS (1)
  1. CHILDREN'S ADVIL [Suspect]
     Indication: PRODUCT USED FOR UNKNOWN INDICATION
     Dosage: 4 DF, 1X/DAY
     Route: 048
     Dates: start: 20100412, end: 20100412

REACTIONS (1)
  - BLISTER [None]
